FAERS Safety Report 25746405 (Version 1)
Quarter: 2025Q3

REPORT INFORMATION
  Report Type: Report from Study
  Country: EU (occurrence: EU)
  Receive Date: 20250901
  Receipt Date: 20250901
  Transmission Date: 20251020
  Serious: Yes (Other)
  Sender: AUROBINDO
  Company Number: EU-SA-2021SA200211

PATIENT
  Age: 70 Year
  Sex: Female

DRUGS (4)
  1. PREGABALIN [Interacting]
     Active Substance: PREGABALIN
     Indication: Orthostatic tremor
     Route: 065
  2. PREGABALIN [Interacting]
     Active Substance: PREGABALIN
     Indication: Tremor
     Route: 065
  3. PERAMPANEL [Interacting]
     Active Substance: PERAMPANEL
     Indication: Orthostatic tremor
     Dosage: 2 MILLIGRAM, ONCE A DAY (2 MG/DAY FOR FIRST MONTH)
     Route: 065
  4. PERAMPANEL [Interacting]
     Active Substance: PERAMPANEL
     Route: 065

REACTIONS (4)
  - Dizziness [Unknown]
  - Drug interaction [Unknown]
  - Off label use [Unknown]
  - Product use in unapproved indication [Unknown]
